FAERS Safety Report 23671484 (Version 2)
Quarter: 2024Q2

REPORT INFORMATION
  Report Type: Spontaneous
  Country: US (occurrence: US)
  Receive Date: 20240326
  Receipt Date: 20240401
  Transmission Date: 20240715
  Serious: Yes (Congenital Anomaly)
  Sender: FDA-Public Use
  Company Number: US-SA-2024SA094043

PATIENT
  Age: 56 Year
  Sex: Male

DRUGS (1)
  1. DUPIXENT [Suspect]
     Active Substance: DUPILUMAB
     Indication: Dermatitis atopic
     Dosage: 300 MG, OTHER
     Route: 058
     Dates: start: 202111

REACTIONS (1)
  - Renal cyst [Unknown]

NARRATIVE: CASE EVENT DATE: 20230705
